FAERS Safety Report 7218205-3 (Version None)
Quarter: 2011Q1

REPORT INFORMATION
  Report Type: 
  Country: None (occurrence: None)
  Receive Date: 20110110
  Receipt Date: 20101130
  Transmission Date: 20110831
  Serious: Yes (Hospitalization, Other)
  Sender: FDA-Public Use
  Company Number: US-BAYER-201022367NA

PATIENT
  Sex: Female
  Weight: 68.027 kg

DRUGS (15)
  1. YAZ [Suspect]
     Indication: PROPHYLAXIS
  2. CETIRIZINE HCL [Concomitant]
     Indication: MULTIPLE ALLERGIES
     Dosage: 10 MG, UNK
     Dates: start: 20010201, end: 20080801
  3. YAZ [Suspect]
     Indication: CONTRACEPTION
     Dosage: UNK
     Dates: start: 20070803, end: 20080820
  4. METHYLPREDNISOLONE ACETATE [Concomitant]
     Dosage: UNK
     Dates: start: 20020101
  5. METHYLPREDNISOLONE ACETATE [Concomitant]
     Dosage: UNK
     Dates: start: 20070101
  6. DOXYCYCLINE HYCLATE [DOXYCYCLINE HYCLATE] [Concomitant]
     Indication: UPPER RESPIRATORY TRACT INFECTION
  7. METHYLPREDNISOLONE ACETATE [Concomitant]
     Dosage: UNK
     Dates: start: 20050101
  8. TYLENOL REGULAR [Concomitant]
     Indication: PAIN
     Dosage: 500 DF, UNK
  9. METHYLPREDNISOLONE ACETATE [Concomitant]
     Dosage: UNK
     Dates: start: 20060101
  10. CETIRIZINE HCL [Concomitant]
     Indication: RHINITIS
  11. METHYLPREDNISOLONE ACETATE [Concomitant]
     Dosage: UNK
     Dates: start: 20010101
  12. DOXYCYCLINE HYCLATE [DOXYCYCLINE HYCLATE] [Concomitant]
     Indication: URINARY TRACT INFECTION
     Dosage: 100 MG, UNK
     Dates: start: 20080828, end: 20080912
  13. CETIRIZINE HCL [Concomitant]
     Indication: RASH
  14. CIPROFLAXACIN [Concomitant]
     Dosage: UNK
     Dates: start: 20081115, end: 20081121
  15. METHYLPREDNISOLONE ACETATE [Concomitant]
     Dosage: UNK
     Dates: start: 20080101

REACTIONS (3)
  - DEEP VEIN THROMBOSIS [None]
  - CHOLELITHIASIS [None]
  - PULMONARY EMBOLISM [None]
